FAERS Safety Report 18339311 (Version 5)
Quarter: 2021Q4

REPORT INFORMATION
  Report Type: Report from Study
  Country: MX (occurrence: MX)
  Receive Date: 20201002
  Receipt Date: 20211112
  Transmission Date: 20220303
  Serious: Yes (Other)
  Sender: FDA-Public Use
  Company Number: NVSC2020MX265347

PATIENT
  Age: 48 Year
  Sex: Female
  Weight: 73 kg

DRUGS (9)
  1. EXFORGE HCT [Suspect]
     Active Substance: AMLODIPINE BESYLATE\HYDROCHLOROTHIAZIDE\VALSARTAN
     Indication: Hypertension
     Dosage: 1 DF, QD (10/320/25 MG)
     Route: 048
     Dates: start: 201505, end: 201511
  2. EXFORGE HCT [Suspect]
     Active Substance: AMLODIPINE BESYLATE\HYDROCHLOROTHIAZIDE\VALSARTAN
     Dosage: 0.5 DF, BID
     Route: 048
     Dates: start: 20200625
  3. EXFORGE HCT [Suspect]
     Active Substance: AMLODIPINE BESYLATE\HYDROCHLOROTHIAZIDE\VALSARTAN
     Dosage: 1 DF, QD (10/320/25 MG)
     Route: 048
  4. EXFORGE HCT [Suspect]
     Active Substance: AMLODIPINE BESYLATE\HYDROCHLOROTHIAZIDE\VALSARTAN
     Dosage: 1 DF, BID (5/160/12.5 MG) (IN THE MORNING AND AT NIGHT)
     Route: 048
     Dates: start: 20200725, end: 20200808
  5. EXFORGE HCT [Suspect]
     Active Substance: AMLODIPINE BESYLATE\HYDROCHLOROTHIAZIDE\VALSARTAN
     Dosage: 0.5 MG, BID (5/160/12.5 MG)
     Route: 048
     Dates: start: 20200808, end: 20200928
  6. EXFORGE HCT [Suspect]
     Active Substance: AMLODIPINE BESYLATE\HYDROCHLOROTHIAZIDE\VALSARTAN
     Dosage: UNK,(5/160/12.5 MG)
     Route: 065
  7. EXFORGE [Suspect]
     Active Substance: AMLODIPINE BESYLATE\VALSARTAN
     Indication: Hypertension
     Dosage: 0.5 DF, BID (5/160 MG)
     Route: 048
     Dates: start: 20200725
  8. EXFORGE [Suspect]
     Active Substance: AMLODIPINE BESYLATE\VALSARTAN
     Dosage: 1.5 DF, (160/5MG) QD
     Route: 048
  9. CHLORTHALIDONE [Suspect]
     Active Substance: CHLORTHALIDONE
     Indication: Diuretic therapy
     Dosage: 1 DF (50 MG EVERY OTHER DAY)
     Route: 065
     Dates: end: 20200725

REACTIONS (19)
  - Poisoning [Recovered/Resolved]
  - Poisoning [Not Recovered/Not Resolved]
  - Hiatus hernia [Recovered/Resolved with Sequelae]
  - Arrhythmia [Recovered/Resolved]
  - Blood pressure increased [Recovered/Resolved]
  - Rash [Recovered/Resolved]
  - Rash [Recovered/Resolved]
  - Vasculitis [Unknown]
  - Hypotension [Unknown]
  - Drug hypersensitivity [Recovered/Resolved]
  - Drug hypersensitivity [Recovered/Resolved]
  - Urticaria [Not Recovered/Not Resolved]
  - Pruritus [Unknown]
  - Palpitations [Not Recovered/Not Resolved]
  - Drug hypersensitivity [Unknown]
  - Rash [Not Recovered/Not Resolved]
  - Colitis [Not Recovered/Not Resolved]
  - Dyspepsia [Unknown]
  - Wrong technique in product usage process [Unknown]

NARRATIVE: CASE EVENT DATE: 20150601
